FAERS Safety Report 4659285-9 (Version None)
Quarter: 2005Q2

REPORT INFORMATION
  Report Type: 
  Country: None (occurrence: None)
  Receive Date: 20050510
  Receipt Date: 20050426
  Transmission Date: 20051028
  Serious: Yes (Hospitalization)
  Sender: FDA-Public Use
  Company Number: 2005-01495

PATIENT
  Sex: Female

DRUGS (1)
  1. FERRLECIT [Suspect]
     Dosage: INTRAVENOUS
     Route: 042
     Dates: start: 20050420, end: 20050420

REACTIONS (1)
  - FACIAL PARESIS [None]
